FAERS Safety Report 5793599-4 (Version None)
Quarter: 2008Q2

REPORT INFORMATION
  Report Type: 
  Country: None (occurrence: None)
  Receive Date: 20080627
  Receipt Date: 20080617
  Transmission Date: 20081010
  Serious: Yes (Other)
  Sender: FDA-Public Use
  Company Number: PHHY2008GB11588

PATIENT
  Age: 58 Year
  Sex: Male

DRUGS (5)
  1. GLIVEC [Suspect]
     Indication: CHRONIC MYELOID LEUKAEMIA
     Dosage: 300 MG, UNK
     Dates: start: 20021203
  2. HYDROXYUREA [Concomitant]
     Dosage: UNK
     Dates: start: 20020909, end: 20030114
  3. INTERFERON ALFA [Concomitant]
     Dosage: UNK
     Dates: start: 20021023, end: 20021203
  4. ALLOPURINOL [Concomitant]
     Dosage: UNK
     Dates: start: 20020909, end: 20021009
  5. NEUPOGEN [Concomitant]
     Dosage: UNK
     Dates: start: 20030521

REACTIONS (5)
  - COOMBS TEST NEGATIVE [None]
  - DIARRHOEA [None]
  - HAEMOLYSIS [None]
  - MUSCLE SPASMS [None]
  - NEUTROPHIL COUNT DECREASED [None]
